FAERS Safety Report 8531863-6 (Version None)
Quarter: 2012Q3

REPORT INFORMATION
  Report Type: 
  Country: None (occurrence: None)
  Receive Date: 20120723
  Receipt Date: 20120714
  Transmission Date: 20120928
  Serious: Yes (Death, Hospitalization, Other)
  Sender: FDA-Public Use
  Company Number: US-MPIJNJ-2012-04954

PATIENT
  Age: 11 Year
  Sex: Female
  Weight: 54.7 kg

DRUGS (4)
  1. CYTARABINE [Suspect]
     Indication: ACUTE MYELOID LEUKAEMIA
     Dosage: 1000 MG/M2, CYCLIC
     Route: 042
     Dates: start: 20120310, end: 20120604
  2. CYTARABINE [Suspect]
     Route: 037
  3. VELCADE [Suspect]
     Indication: ACUTE MYELOID LEUKAEMIA
     Dosage: 1.3 MG/M2, CYCLIC
     Route: 040
     Dates: start: 20120310, end: 20120608
  4. ETOPOSIDE [Suspect]
     Indication: ACUTE MYELOID LEUKAEMIA
     Dosage: 150 MG/M2, CYCLIC
     Route: 042
     Dates: start: 20120310, end: 20120604

REACTIONS (4)
  - CAECITIS [None]
  - PANCYTOPENIA [None]
  - PYREXIA [None]
  - ENTEROCOLITIS INFECTIOUS [None]
